FAERS Safety Report 9753733 (Version 4)
Quarter: 2014Q1

REPORT INFORMATION
  Report Type: Spontaneous
  Country: AR (occurrence: None)
  Receive Date: 20131211
  Receipt Date: 20140320
  Transmission Date: 20141002
  Serious: Yes (Other)
  Sender: FDA-Public Use
  Company Number: VAL_02853_2013

PATIENT
  Sex: Male

DRUGS (3)
  1. PARLODEL [Suspect]
     Indication: PROLACTINOMA
     Dosage: (4 DF, [DAIL] ORAL)
     Route: 048
     Dates: start: 1985, end: 201305
  2. PARLODEL [Suspect]
     Indication: BENIGN NEOPLASM
     Dosage: (4 DF, [DAIL] ORAL)
     Route: 048
     Dates: start: 1985, end: 201305
  3. PARLODEL [Suspect]
     Indication: PITUITARY TUMOUR
     Dosage: (4 DF, [DAIL] ORAL)
     Route: 048
     Dates: start: 1985, end: 201305

REACTIONS (21)
  - Intraocular pressure increased [None]
  - Headache [None]
  - Eye pain [None]
  - Ear pain [None]
  - Vision blurred [None]
  - Blood pressure fluctuation [None]
  - Visual acuity reduced [None]
  - Gait disturbance [None]
  - Fear [None]
  - Blood prolactin increased [None]
  - Prolactinoma [None]
  - Neoplasm progression [None]
  - Memory impairment [None]
  - Feeling abnormal [None]
  - Vision blurred [None]
  - Hypothalamo-pituitary disorder [None]
  - Drug withdrawal syndrome [None]
  - Gait disturbance [None]
  - General physical health deterioration [None]
  - Hypothalamo-pituitary disorder [None]
  - Drug administration error [None]
